FAERS Safety Report 7492949-0 (Version None)
Quarter: 2011Q2

REPORT INFORMATION
  Report Type: 
  Country: None (occurrence: None)
  Receive Date: 20110520
  Receipt Date: 20110509
  Transmission Date: 20111010
  Serious: Yes (Other)
  Sender: FDA-Public Use
  Company Number: GB-RANBAXY-2011R1-44329

PATIENT
  Sex: Female
  Weight: 82 kg

DRUGS (5)
  1. MOTILIUM [Concomitant]
     Indication: NAUSEA
     Dosage: 10 MG, AS NECESSARY
     Route: 048
  2. MAXALT [Concomitant]
     Indication: MIGRAINE
     Dosage: 10 MG, AS NECESSARY
     Route: 060
     Dates: start: 20070101
  3. TOPIRAMATE [Suspect]
     Indication: PRODUCT USED FOR UNKNOWN INDICATION
     Dosage: 50 MG, BID
     Route: 048
     Dates: start: 20110308, end: 20110414
  4. SUMATRIPTAN SUCCINATE [Concomitant]
     Indication: MIGRAINE
     Dosage: 100 MG, AS NECESSARY
     Route: 048
  5. SUMATRIPTAN SUCCINATE [Concomitant]
     Indication: MIGRAINE
     Dosage: 6 MG, AS NECESSARY
     Route: 058

REACTIONS (3)
  - AMNESIA [None]
  - PARAESTHESIA [None]
  - CONFUSIONAL STATE [None]
